FAERS Safety Report 20464980 (Version 1)
Quarter: 2022Q1

REPORT INFORMATION
  Report Type: Spontaneous
  Country: US (occurrence: US)
  Receive Date: 20220211
  Receipt Date: 20220211
  Transmission Date: 20220423
  Serious: Yes (Other)
  Sender: FDA-Public Use
  Company Number: US-NOVARTISPH-NVSC2022US032211

PATIENT
  Age: 42 Year
  Sex: Female

DRUGS (2)
  1. RANITIDINE [Suspect]
     Active Substance: RANITIDINE
     Indication: Gastrooesophageal reflux disease
     Dosage: UNKNOWN AT THIS TIME,,DAILY,TWICE A DAY
     Route: 048
     Dates: start: 201406, end: 201612
  2. RANITIDINE [Suspect]
     Active Substance: RANITIDINE
     Indication: Gastrooesophageal reflux disease
     Dosage: UNKNOWN AT THIS TIME,,DAILY,TWICE A DAY
     Route: 048
     Dates: start: 201406, end: 201612

REACTIONS (2)
  - Breast cancer [Recovered/Resolved]
  - Incorrect dose administered [Unknown]

NARRATIVE: CASE EVENT DATE: 20160401
